FAERS Safety Report 17913738 (Version 1)
Quarter: 2020Q2

REPORT INFORMATION
  Report Type: Report from Study
  Country: MX (occurrence: MX)
  Receive Date: 20200618
  Receipt Date: 20200618
  Transmission Date: 20200714
  Serious: Yes (Other)
  Sender: FDA-Public Use
  Company Number: PHHY2014MX127956

PATIENT
  Sex: Male
  Weight: 120 kg

DRUGS (4)
  1. GLIVEC [Suspect]
     Active Substance: IMATINIB MESYLATE
     Indication: CHRONIC MYELOID LEUKAEMIA
     Dosage: 1.5 DF (400 MG), DAILY
     Route: 048
  2. CO-DIOVAN [Suspect]
     Active Substance: HYDROCHLOROTHIAZIDE\VALSARTAN
     Dosage: 1 DF, QD (HYDROCHLOROTHIAZIDE 25 MG, VALSARTAN 160 MG) APPROXIMATELY 8 OR 10 YEARS AGO
     Route: 048
  3. GLIVEC [Suspect]
     Active Substance: IMATINIB MESYLATE
     Dosage: 600 MG, QD (APPROXIMATELY 6 YEARS AGO)
     Route: 048
  4. CO-DIOVAN [Suspect]
     Active Substance: HYDROCHLOROTHIAZIDE\VALSARTAN
     Indication: HYPERTENSION
     Dosage: 1 DF
     Route: 065

REACTIONS (5)
  - Dermatosis [Not Recovered/Not Resolved]
  - Leukaemia [Unknown]
  - Oedema [Not Recovered/Not Resolved]
  - Hyperuricaemia [Not Recovered/Not Resolved]
  - Fluid retention [Unknown]
